FAERS Safety Report 17392051 (Version 2)
Quarter: 2022Q3

REPORT INFORMATION
  Report Type: Spontaneous
  Country: JP (occurrence: JP)
  Receive Date: 20200207
  Receipt Date: 20220720
  Transmission Date: 20221027
  Serious: Yes (Death, Other)
  Sender: FDA-Public Use
  Company Number: JP-SUN PHARMACEUTICAL INDUSTRIES LTD-2020R1-235604

PATIENT
  Age: 48 Year
  Sex: Male
  Weight: 59 kg

DRUGS (4)
  1. HYDROCORTISONE [Suspect]
     Active Substance: HYDROCORTISONE
     Indication: Basedow^s disease
     Dosage: 200 MILLIGRAM, DAILY
     Route: 065
  2. METHIMAZOLE [Suspect]
     Active Substance: METHIMAZOLE
     Indication: Basedow^s disease
     Dosage: 30 MILLIGRAM, DAILY
     Route: 042
  3. IODINE [Suspect]
     Active Substance: IODINE
     Indication: Basedow^s disease
     Dosage: 100 MILLIGRAM, DAILY
     Route: 065
  4. LANDIOLOL HYDROCHLORIDE [Suspect]
     Active Substance: LANDIOLOL HYDROCHLORIDE
     Indication: Basedow^s disease
     Dosage: UNK
     Route: 065

REACTIONS (2)
  - Thyrotoxic crisis [Fatal]
  - Hepatitis fulminant [Fatal]
